FAERS Safety Report 15130717 (Version 1)
Quarter: 2018Q3

REPORT INFORMATION
  Report Type: Spontaneous
  Country: US (occurrence: US)
  Receive Date: 20180711
  Receipt Date: 20180711
  Transmission Date: 20181010
  Serious: No
  Sender: FDA-Public Use
  Company Number: US-AMNEAL PHARMACEUTICALS-2018AMN00269

PATIENT

DRUGS (8)
  1. PROPAFENONE. [Concomitant]
     Active Substance: PROPAFENONE
  2. POTASSIUM [Concomitant]
     Active Substance: POTASSIUM
  3. NITROFURANTOIN. [Concomitant]
     Active Substance: NITROFURANTOIN
  4. SYNTHROID [Concomitant]
     Active Substance: LEVOTHYROXINE SODIUM
  5. TRAMADOL. [Concomitant]
     Active Substance: TRAMADOL
  6. DICLOFENAC SODIUM. [Suspect]
     Active Substance: DICLOFENAC SODIUM
     Dosage: 2 G, 2X/DAY
     Dates: end: 20180513
  7. L?THYROXINE [Concomitant]
     Active Substance: LEVOTHYROXINE
  8. LOVASTATIN. [Concomitant]
     Active Substance: LOVASTATIN

REACTIONS (4)
  - Burning sensation [Not Recovered/Not Resolved]
  - Pain [Not Recovered/Not Resolved]
  - Paraesthesia [Not Recovered/Not Resolved]
  - Peripheral swelling [Not Recovered/Not Resolved]
